FAERS Safety Report 9726856 (Version 1)
Quarter: 2013Q4

REPORT INFORMATION
  Report Type: Spontaneous
  Country: US (occurrence: US)
  Receive Date: 20131203
  Receipt Date: 20131203
  Transmission Date: 20140711
  Serious: No
  Sender: FDA-Public Use
  Company Number: US-NOVEN-13US006626

PATIENT
  Sex: Female

DRUGS (3)
  1. FENTANYL [Suspect]
     Indication: PAIN
     Dosage: 75 UG, UNK
     Route: 062
  2. FENTANYL [Suspect]
     Dosage: 50 UG, UNK
  3. FENTANYL [Suspect]
     Dosage: 25 UG, UNK

REACTIONS (3)
  - Application site vesicles [Not Recovered/Not Resolved]
  - Drug administration error [Not Recovered/Not Resolved]
  - Product quality issue [Not Recovered/Not Resolved]
